FAERS Safety Report 8834013 (Version 1)
Quarter: 2012Q4

REPORT INFORMATION
  Report Type: 
  Country: US (occurrence: US)
  Receive Date: 20121010
  Receipt Date: 20121010
  Transmission Date: 20130627
  Serious: No
  Sender: FDA-Public Use
  Company Number: US-VERTEX PHARMACEUTICAL INC.-2012-022073

PATIENT
  Sex: Female
  Weight: 84 kg

DRUGS (6)
  1. VX-950 [Suspect]
     Indication: HEPATITIS C
     Dosage: 750 mg, tid
     Route: 048
  2. PEGASYS [Concomitant]
     Indication: HEPATITIS C
  3. RIBAPAK [Concomitant]
     Indication: HEPATITIS C
     Dosage: 1200 mg, qd
  4. ALEVE [Concomitant]
     Dosage: 220 mg, UNK
  5. MAXALT                             /01406501/ [Concomitant]
     Dosage: 10 mg, UNK
  6. IBU [Concomitant]
     Dosage: 400 mg, UNK

REACTIONS (4)
  - Fatigue [Unknown]
  - Rash [Unknown]
  - Anal pruritus [Unknown]
  - Diarrhoea [Unknown]
